FAERS Safety Report 9271134 (Version 1)
Quarter: 2013Q2

REPORT INFORMATION
  Report Type: Report from Study
  Country: US (occurrence: US)
  Receive Date: 20130506
  Receipt Date: 20130506
  Transmission Date: 20140414
  Serious: Yes (Life-Threatening, Hospitalization, Other)
  Sender: FDA-Public Use
  Company Number: PHEH2012US006513

PATIENT
  Age: 60 Year
  Sex: Male
  Weight: 94 kg

DRUGS (6)
  1. GLEEVEC [Suspect]
     Indication: CHRONIC MYELOID LEUKAEMIA
     Dosage: 400 MG, UNK
     Route: 048
     Dates: start: 20100518, end: 20120419
  2. GLEEVEC [Suspect]
     Dosage: 800 MG, UNK
     Route: 048
     Dates: start: 20120420
  3. CHEMOTHERAPEUTICS [Concomitant]
  4. ASPIRIN [Concomitant]
     Dosage: 325 MG, UNK
     Route: 048
  5. OMEPRAZOLE [Concomitant]
     Dosage: 40 MG, UNK
     Route: 048
  6. SIMVASTATIN [Concomitant]
     Dosage: 40 MG, UNK

REACTIONS (5)
  - Chronic myeloid leukaemia transformation [Unknown]
  - Sinus disorder [Unknown]
  - Nervous system disorder [Unknown]
  - Skin disorder [Unknown]
  - Diplopia [Unknown]
